FAERS Safety Report 16990367 (Version 1)
Quarter: 2019Q4

REPORT INFORMATION
  Report Type: Spontaneous
  Country: US (occurrence: US)
  Receive Date: 20191103
  Receipt Date: 20191103
  Transmission Date: 20200122
  Serious: Yes (Other)
  Sender: FDA-Public Use
  Company Number: None

PATIENT
  Age: 44 Year
  Sex: Female

DRUGS (2)
  1. MULTI-VITAMIN, NOT DAILY [Concomitant]
  2. PREDNISONE 20 MG TABLET [Suspect]
     Active Substance: PREDNISONE
     Indication: TINNITUS
     Dosage: ?          QUANTITY:10 TABLET(S);?
     Route: 048

REACTIONS (6)
  - Hyperhidrosis [None]
  - Lethargy [None]
  - Treatment noncompliance [None]
  - Cognitive disorder [None]
  - Aggression [None]
  - Muscular weakness [None]

NARRATIVE: CASE EVENT DATE: 20191017
